FAERS Safety Report 8217256-X (Version None)
Quarter: 2012Q1

REPORT INFORMATION
  Report Type: 
  Country: None (occurrence: None)
  Receive Date: 20120319
  Receipt Date: 20120314
  Transmission Date: 20120608
  Serious: No
  Sender: FDA-Public Use
  Company Number: US-PFIZER INC-2012067641

PATIENT
  Sex: Male
  Weight: 86.168 kg

DRUGS (2)
  1. SITAGLIPTIN AND METFORMIN HYDROCHLORIDE [Concomitant]
     Indication: DIABETES MELLITUS
     Dosage: UNKN, 2X/DAY
     Route: 048
  2. ADVIL PM [Suspect]
     Dosage: UNKN, DAILY
     Route: 048
     Dates: start: 20120301, end: 20120301

REACTIONS (3)
  - ABNORMAL DREAMS [None]
  - HALLUCINATION [None]
  - DRUG INEFFECTIVE [None]
